FAERS Safety Report 20723539 (Version 1)
Quarter: 2022Q2

REPORT INFORMATION
  Report Type: Spontaneous
  Country: US (occurrence: US)
  Receive Date: 20220419
  Receipt Date: 20220419
  Transmission Date: 20220720
  Serious: Yes (Other)
  Sender: FDA-Public Use
  Company Number: US-ABBVIE-22K-163-4362725-00

PATIENT
  Sex: Female

DRUGS (1)
  1. VENCLEXTA [Suspect]
     Active Substance: VENETOCLAX
     Indication: Product used for unknown indication
     Route: 048

REACTIONS (5)
  - Acute lymphocytic leukaemia [Unknown]
  - Onychoclasis [Unknown]
  - Skin laceration [Unknown]
  - Asthenia [Unknown]
  - Wound haemorrhage [Unknown]
